FAERS Safety Report 23602426 (Version 1)
Quarter: 2024Q1

REPORT INFORMATION
  Report Type: Report from Study
  Country: EG (occurrence: EG)
  Receive Date: 20240306
  Receipt Date: 20240306
  Transmission Date: 20240409
  Serious: No
  Sender: FDA-Public Use
  Company Number: EG-SANDOZ-SDZ2023EG017689

PATIENT

DRUGS (1)
  1. OMNITROPE [Suspect]
     Active Substance: SOMATROPIN
     Indication: Product used for unknown indication
     Dosage: UNK, STRENGTH:5/1.5 MG/ML
     Route: 058

REACTIONS (3)
  - Wrong technique in device usage process [Unknown]
  - Multiple use of single-use product [Unknown]
  - Device issue [Unknown]
